FAERS Safety Report 23689934 (Version 3)
Quarter: 2024Q2

REPORT INFORMATION
  Report Type: Report from Study
  Country: US (occurrence: US)
  Receive Date: 20240401
  Receipt Date: 20240620
  Transmission Date: 20240716
  Serious: Yes (Other)
  Sender: FDA-Public Use
  Company Number: US-ABBVIE-5696495

PATIENT
  Sex: Female

DRUGS (2)
  1. RINVOQ [Suspect]
     Active Substance: UPADACITINIB
     Indication: Rheumatoid arthritis
     Route: 048
     Dates: start: 20231221, end: 202402
  2. RINVOQ [Suspect]
     Active Substance: UPADACITINIB
     Indication: Rheumatoid arthritis
     Route: 048
     Dates: start: 202402

REACTIONS (5)
  - Neck surgery [Recovering/Resolving]
  - Oropharyngeal candidiasis [Recovering/Resolving]
  - Weight increased [Recovering/Resolving]
  - Oral candidiasis [Recovering/Resolving]
  - Oral mucosal discolouration [Recovering/Resolving]

NARRATIVE: CASE EVENT DATE: 20240101
